FAERS Safety Report 9210199 (Version 2)
Quarter: 2013Q3

REPORT INFORMATION
  Report Type: Report from Study
  Country: FI (occurrence: FI)
  Receive Date: 20130404
  Receipt Date: 20130711
  Transmission Date: 20140515
  Serious: Yes (Other)
  Sender: FDA-Public Use
  Company Number: FI-ELI_LILLY_AND_COMPANY-FI201303009545

PATIENT
  Age: 84 Year
  Sex: Female

DRUGS (4)
  1. TERIPARATIDE [Suspect]
     Indication: OSTEOPOROSIS
     Dosage: 20 UG, QD
     Route: 058
     Dates: start: 20120213
  2. PANADOL [Concomitant]
     Indication: PAIN
     Dosage: UNK, UNKNOWN
     Route: 065
  3. MAREVAN [Concomitant]
     Indication: CEREBRAL INFARCTION
     Dosage: UNK, UNKNOWN
     Route: 065
  4. CALCIUM +VIT D [Concomitant]
     Indication: MEDICAL DIET
     Dosage: UNK, UNKNOWN
     Route: 065

REACTIONS (2)
  - Arrhythmia [Recovered/Resolved]
  - Nausea [Unknown]
